FAERS Safety Report 4448884-5 (Version None)
Quarter: 2004Q3

REPORT INFORMATION
  Report Type: 
  Country: None (occurrence: None)
  Receive Date: 20040913
  Receipt Date: 20040831
  Transmission Date: 20050211
  Serious: Yes (Other)
  Sender: FDA-Public Use
  Company Number: US-JNJFOC-20040900515

PATIENT
  Age: 42 Year
  Sex: Female

DRUGS (3)
  1. ACETAMINOPHEN [Suspect]
     Indication: PROPHYLAXIS
     Dosage: 1000 MG, 1 IN 1 TOTAL, ORAL
     Route: 048
     Dates: start: 20040825, end: 20040825
  2. AVONEX [Suspect]
     Indication: DRUG USE FOR UNKNOWN INDICATION
     Dosage: 1 IN 1 WEEK
     Dates: start: 20030401
  3. LEXAPRO [Concomitant]

REACTIONS (8)
  - AKINESIA [None]
  - ASTHENIA [None]
  - CHILLS [None]
  - HYPERVENTILATION [None]
  - MUSCLE TIGHTNESS [None]
  - MUSCULOSKELETAL STIFFNESS [None]
  - SPEECH DISORDER [None]
  - TREMOR [None]
